FAERS Safety Report 4347222-6 (Version None)
Quarter: 2004Q2

REPORT INFORMATION
  Report Type: 
  Country: None (occurrence: None)
  Receive Date: 20040426
  Receipt Date: 19990709
  Transmission Date: 20050107
  Serious: Yes (Disabling)
  Sender: FDA-Public Use
  Company Number: US-MERCK-99070649

PATIENT
  Sex: Female

DRUGS (7)
  1. LOTENSIN [Concomitant]
     Route: 065
  2. PREMARIN [Concomitant]
     Route: 065
  3. ADVIL [Concomitant]
     Indication: PAIN
     Route: 065
  4. PREVACID [Concomitant]
     Route: 065
  5. PRILOSEC [Concomitant]
     Route: 065
  6. ZOCOR [Suspect]
     Indication: HYPERCHOLESTEROLAEMIA
     Route: 048
  7. ZOCOR [Suspect]
     Route: 048
     Dates: start: 19910101

REACTIONS (3)
  - DIFFICULTY IN WALKING [None]
  - MUSCULOSKELETAL STIFFNESS [None]
  - MYALGIA [None]
